FAERS Safety Report 24217486 (Version 5)
Quarter: 2025Q2

REPORT INFORMATION
  Report Type: Spontaneous
  Country: US (occurrence: US)
  Receive Date: 20240816
  Receipt Date: 20250522
  Transmission Date: 20250717
  Serious: Yes (Other)
  Sender: BRISTOL-MYERS SQUIBB COMPANY
  Company Number: US-BRISTOL-MYERS SQUIBB COMPANY-2024-126176

PATIENT
  Age: 73 Year
  Sex: Female

DRUGS (1)
  1. REVLIMID [Suspect]
     Active Substance: LENALIDOMIDE
     Indication: Plasma cell myeloma
     Dosage: FREQ: QD FOR 21 DAYS ON 7 DAYS OFF, CYCLIC
     Route: 048

REACTIONS (6)
  - Haemorrhoids [Unknown]
  - Bowel movement irregularity [Unknown]
  - Nocturia [Unknown]
  - Back pain [Unknown]
  - Alopecia [Unknown]
  - Feeling abnormal [Unknown]
